FAERS Safety Report 15505827 (Version 1)
Quarter: 2018Q4

REPORT INFORMATION
  Report Type: Spontaneous
  Country: US (occurrence: US)
  Receive Date: 20181016
  Receipt Date: 20181016
  Transmission Date: 20190205
  Serious: No
  Sender: FDA-Public Use
  Company Number: US-PFIZER INC-2018417053

PATIENT
  Age: 26 Year
  Sex: Female

DRUGS (1)
  1. LYRICA [Suspect]
     Active Substance: PREGABALIN
     Indication: AUTONOMIC DYSREFLEXIA
     Dosage: 100 MG, 2X/DAY
     Route: 048

REACTIONS (3)
  - Pain in extremity [Unknown]
  - Product use in unapproved indication [Unknown]
  - Back pain [Unknown]
